FAERS Safety Report 6111687-X (Version None)
Quarter: 2009Q1

REPORT INFORMATION
  Report Type: 
  Country: None (occurrence: None)
  Receive Date: 20090310
  Receipt Date: 20090310
  Transmission Date: 20090719
  Serious: Yes (Hospitalization, Other)
  Sender: FDA-Public Use
  Company Number: None

PATIENT
  Age: 73 Year
  Sex: Female

DRUGS (2)
  1. FOSAMAX [Suspect]
     Indication: OSTEOPOROSIS
  2. ALENDRONATE SODIUM [Suspect]

REACTIONS (12)
  - AMNESIA [None]
  - BLOOD DISORDER [None]
  - BONE DISORDER [None]
  - FAECAL INCONTINENCE [None]
  - GINGIVAL DISORDER [None]
  - HEADACHE [None]
  - IMPAIRED SELF-CARE [None]
  - LOSS OF CONTROL OF LEGS [None]
  - MUSCULOSKELETAL STIFFNESS [None]
  - RESORPTION BONE INCREASED [None]
  - THYROID DISORDER [None]
  - TOOTH LOSS [None]
